FAERS Safety Report 13209266 (Version 1)
Quarter: 2017Q1

REPORT INFORMATION
  Report Type: Spontaneous
  Country: US (occurrence: US)
  Receive Date: 20170209
  Receipt Date: 20170209
  Transmission Date: 20170428
  Serious: No
  Sender: FDA-Public Use
  Company Number: US-PERRIGO-16US021311

PATIENT
  Age: 2 Year
  Sex: Female
  Weight: 11.34 kg

DRUGS (2)
  1. IBUPROFEN. [Suspect]
     Active Substance: IBUPROFEN
     Indication: PYREXIA
     Dosage: 50 MG, PRN
     Route: 048
     Dates: start: 2016, end: 2016
  2. IBUPROFEN. [Suspect]
     Active Substance: IBUPROFEN
     Dosage: 1 TO 2 CAPFULS, SINGLE
     Route: 048
     Dates: start: 20161025, end: 20161025

REACTIONS (3)
  - Diarrhoea [Recovered/Resolved]
  - Underdose [Recovered/Resolved]
  - Accidental exposure to product [Recovered/Resolved]

NARRATIVE: CASE EVENT DATE: 2016
